FAERS Safety Report 18127539 (Version 2)
Quarter: 2020Q3

REPORT INFORMATION
  Report Type: Spontaneous
  Country: IT (occurrence: IT)
  Receive Date: 20200810
  Receipt Date: 20200901
  Transmission Date: 20201103
  Serious: Yes (Other)
  Sender: FDA-Public Use
  Company Number: IT-ROCHE-2655605

PATIENT
  Age: 62 Year
  Sex: Female

DRUGS (11)
  1. DEXAMETHASONE. [Concomitant]
     Active Substance: DEXAMETHASONE
     Route: 065
     Dates: start: 20140901
  2. DOCETAXEL. [Suspect]
     Active Substance: DOCETAXEL
     Indication: BRONCHIAL CARCINOMA
     Dosage: MOST RECENT DOSE PRIOR TO AE 11/JUL/2019
     Route: 065
     Dates: start: 20141124
  3. TROPISETRON [Concomitant]
     Active Substance: TROPISETRON
     Dates: start: 20140901
  4. TRASTUZUMAB. [Suspect]
     Active Substance: TRASTUZUMAB
     Indication: BRONCHIAL CARCINOMA
     Dosage: MOST RECENT DOSE PRIOR TO AE 26/SEP/2019
     Route: 065
     Dates: start: 20141124
  5. RANITIDINE. [Concomitant]
     Active Substance: RANITIDINE
     Dates: start: 20140901
  6. CHLORPHENAMINE [Concomitant]
     Active Substance: CHLORPHENIRAMINE MALEATE
     Dates: start: 20140901
  7. EPIRUBICIN HYDROCHLORIDE. [Suspect]
     Active Substance: EPIRUBICIN HYDROCHLORIDE
     Indication: BRONCHIAL CARCINOMA
     Dosage: MOST RECENT DOSE PRIOR TO AE 03/NOV/2014
     Route: 065
     Dates: start: 20140901
  8. PALONOSETRON HYDROCHLORIDE. [Concomitant]
     Active Substance: PALONOSETRON HYDROCHLORIDE
     Dates: start: 20140901
  9. METHYLPREDNISOLONE. [Concomitant]
     Active Substance: METHYLPREDNISOLONE
     Dates: start: 20140901
  10. APREPITANT. [Concomitant]
     Active Substance: APREPITANT
     Dates: start: 20140901
  11. CYCLOPHOSPHAMIDE. [Suspect]
     Active Substance: CYCLOPHOSPHAMIDE
     Indication: BRONCHIAL CARCINOMA
     Dosage: MOST RECENT DOSE PRIOR TO AE : 03/NOV/2014
     Route: 065
     Dates: start: 20140901

REACTIONS (1)
  - Acute pulmonary oedema [Unknown]

NARRATIVE: CASE EVENT DATE: 20190926
